FAERS Safety Report 10529135 (Version 2)
Quarter: 2014Q4

REPORT INFORMATION
  Report Type: Spontaneous
  Country: US (occurrence: US)
  Receive Date: 20141020
  Receipt Date: 20141020
  Transmission Date: 20150528
  Serious: Yes (Death, Hospitalization, Other)
  Sender: FDA-Public Use
  Company Number: US-ELI_LILLY_AND_COMPANY-US201405009600

PATIENT
  Sex: Female

DRUGS (3)
  1. LANTUS [Concomitant]
     Active Substance: INSULIN GLARGINE
     Indication: PRODUCT USED FOR UNKNOWN INDICATION
     Route: 065
  2. MORPHINE [Concomitant]
     Active Substance: MORPHINE
  3. HUMALOG [Suspect]
     Active Substance: INSULIN LISPRO
     Indication: TYPE 2 DIABETES MELLITUS
     Dosage: UNK UNK, PRN
     Route: 065

REACTIONS (11)
  - Chemical injury [Unknown]
  - Gallbladder disorder [Unknown]
  - Vomiting [Unknown]
  - Blood glucose abnormal [Unknown]
  - Respiratory disorder [Unknown]
  - Nausea [Unknown]
  - Aspiration [Unknown]
  - Organ failure [Fatal]
  - Disorientation [Unknown]
  - Drug ineffective [Unknown]
  - Product tampering [Unknown]
